FAERS Safety Report 12626655 (Version 1)
Quarter: 2016Q3

REPORT INFORMATION
  Report Type: Report from Study
  Country: US (occurrence: US)
  Receive Date: 20160805
  Receipt Date: 20160805
  Transmission Date: 20161109
  Serious: Yes (Hospitalization, Other)
  Sender: FDA-Public Use
  Company Number: US-ABBVIE-16K-163-1687412-00

PATIENT
  Age: 49 Year
  Sex: Female

DRUGS (1)
  1. HUMIRA [Suspect]
     Active Substance: ADALIMUMAB
     Indication: RHEUMATOID ARTHRITIS
     Route: 058
     Dates: start: 20140825, end: 201606

REACTIONS (7)
  - Drug ineffective [Not Recovered/Not Resolved]
  - Thrombosis [Not Recovered/Not Resolved]
  - Road traffic accident [Recovered/Resolved]
  - Road traffic accident [Recovered/Resolved]
  - Chest pain [Recovered/Resolved]
  - Venous stenosis [Not Recovered/Not Resolved]
  - Chest injury [Recovered/Resolved]

NARRATIVE: CASE EVENT DATE: 201603
